FAERS Safety Report 5207247-5 (Version None)
Quarter: 2007Q1

REPORT INFORMATION
  Report Type: 
  Country: None (occurrence: None)
  Receive Date: 20070112
  Receipt Date: 20070109
  Transmission Date: 20070707
  Serious: Yes (Death)
  Sender: FDA-Public Use
  Company Number: VE-SANOFI-SYNTHELABO-F01200700017

PATIENT
  Sex: Male
  Weight: 45 kg

DRUGS (4)
  1. OMEPRAZOLE [Concomitant]
     Route: 048
  2. LEUCOVORIN CALCIUM [Suspect]
     Route: 041
     Dates: start: 20061226, end: 20061227
  3. FLUOROURACIL [Suspect]
     Route: 041
     Dates: start: 20061226, end: 20061227
  4. OXALIPLATIN [Suspect]
     Indication: COLON CANCER
     Route: 041
     Dates: start: 20061226, end: 20061226

REACTIONS (1)
  - DEATH [None]
